FAERS Safety Report 14786315 (Version 1)
Quarter: 2018Q2

REPORT INFORMATION
  Report Type: Spontaneous
  Country: US (occurrence: US)
  Receive Date: 20180420
  Receipt Date: 20180420
  Transmission Date: 20180711
  Serious: Yes (Other)
  Sender: FDA-Public Use
  Company Number: US-TEVA-2018-US-881520

PATIENT
  Sex: Female

DRUGS (1)
  1. AMPHETAMINE W/DEXTROAMPHETAMINE [Suspect]
     Active Substance: AMPHETAMINE SULFATE\DEXTROAMPHETAMINE
     Indication: VASCULITIS
     Dosage: 60 MILLIGRAM DAILY;
     Route: 048
     Dates: start: 2015

REACTIONS (6)
  - Sluggishness [Unknown]
  - Memory impairment [Unknown]
  - Fatigue [Unknown]
  - Wrong technique in product usage process [Unknown]
  - Intentional product misuse [Unknown]
  - Eating disorder [Unknown]

NARRATIVE: CASE EVENT DATE: 2015
